FAERS Safety Report 23718858 (Version 2)
Quarter: 2024Q2

REPORT INFORMATION
  Report Type: Spontaneous
  Country: AU (occurrence: AU)
  Receive Date: 20240408
  Receipt Date: 20240517
  Transmission Date: 20240715
  Serious: Yes (Hospitalization, Other)
  Sender: FDA-Public Use
  Company Number: AU-TAKEDA-2024TUS032787

PATIENT
  Age: 78 Year
  Sex: Male

DRUGS (2)
  1. KIOVIG [Suspect]
     Active Substance: HUMAN IMMUNOGLOBULIN G
     Indication: Encephalitis autoimmune
     Dosage: UNK UNK, QD
     Route: 042
     Dates: start: 20240306, end: 20240310
  2. KIOVIG [Suspect]
     Active Substance: HUMAN IMMUNOGLOBULIN G
     Indication: Paraneoplastic encephalomyelitis

REACTIONS (2)
  - Haemolysis [Recovered/Resolved]
  - Haemolytic anaemia [Unknown]

NARRATIVE: CASE EVENT DATE: 20240306
